FAERS Safety Report 7669136-6 (Version None)
Quarter: 2011Q3

REPORT INFORMATION
  Report Type: 
  Country: None (occurrence: None)
  Receive Date: 20110808
  Receipt Date: 20110725
  Transmission Date: 20111222
  Serious: Yes (Other)
  Sender: FDA-Public Use
  Company Number: PHHY2010DE76914

PATIENT
  Sex: Male

DRUGS (1)
  1. CLOZAPINE [Suspect]
     Indication: PSYCHOTIC DISORDER
     Dosage: 200 MG, QD
     Route: 048

REACTIONS (2)
  - BLOOD IMMUNOGLOBULIN M DECREASED [None]
  - BLOOD IMMUNOGLOBULIN G DECREASED [None]
